FAERS Safety Report 5299841-0 (Version None)
Quarter: 2007Q2

REPORT INFORMATION
  Report Type: 
  Country: None (occurrence: None)
  Receive Date: 20070417
  Receipt Date: 20070405
  Transmission Date: 20071010
  Serious: Yes (Other)
  Sender: FDA-Public Use
  Company Number: US-PFIZER INC-2007028501

PATIENT
  Sex: Female

DRUGS (7)
  1. CHANTIX [Suspect]
     Indication: EX-SMOKER
     Dates: start: 20060101, end: 20060101
  2. TOPAMAX [Suspect]
     Indication: MIGRAINE
  3. MICRO-K [Concomitant]
  4. MAXZIDE [Concomitant]
  5. VASOTEC [Concomitant]
  6. VICODIN ES [Concomitant]
  7. XANAX [Concomitant]

REACTIONS (4)
  - BLINDNESS [None]
  - GASTRIC DISORDER [None]
  - MIGRAINE [None]
  - VOMITING [None]
